FAERS Safety Report 12527583 (Version 4)
Quarter: 2016Q3

REPORT INFORMATION
  Report Type: Spontaneous
  Country: IT (occurrence: IT)
  Receive Date: 20160705
  Receipt Date: 20160819
  Transmission Date: 20161109
  Serious: Yes (Hospitalization)
  Sender: FDA-Public Use
  Company Number: IT-ROCHE-1788663

PATIENT
  Age: 46 Year
  Sex: Male

DRUGS (10)
  1. EXVIERA [Suspect]
     Active Substance: DASABUVIR
     Route: 048
     Dates: start: 20160522, end: 20160530
  2. ATENOLOL. [Concomitant]
     Active Substance: ATENOLOL
     Route: 048
  3. VIEKIRAX [Suspect]
     Active Substance: OMBITASVIR\PARITAPREVIR\RITONAVIR
     Route: 048
     Dates: start: 20160522, end: 20160530
  4. RIBAVIRIN. [Suspect]
     Active Substance: RIBAVIRIN
     Indication: HEPATITIS C
     Route: 048
     Dates: start: 20160504, end: 20160511
  5. RIBAVIRIN. [Suspect]
     Active Substance: RIBAVIRIN
     Route: 048
     Dates: start: 20160522, end: 20160530
  6. EXVIERA [Suspect]
     Active Substance: DASABUVIR
     Indication: HEPATITIS C
     Route: 048
     Dates: start: 20160504, end: 20160511
  7. LASIX [Concomitant]
     Active Substance: FUROSEMIDE
     Route: 048
  8. ADVAGRAF [Suspect]
     Active Substance: TACROLIMUS
     Indication: PROPHYLAXIS AGAINST TRANSPLANT REJECTION
     Dosage: PERIOD: 1 YEAR
     Route: 048
  9. ALDACTONE (ITALY) [Concomitant]
     Route: 048
  10. VIEKIRAX [Suspect]
     Active Substance: OMBITASVIR\PARITAPREVIR\RITONAVIR
     Indication: HEPATITIS C
     Route: 048
     Dates: start: 20160504, end: 20160511

REACTIONS (2)
  - Generalised tonic-clonic seizure [Recovered/Resolved]
  - Acute kidney injury [Recovered/Resolved]

NARRATIVE: CASE EVENT DATE: 20160509
